FAERS Safety Report 25908566 (Version 1)
Quarter: 2025Q4

REPORT INFORMATION
  Report Type: Report from Study
  Country: EG (occurrence: EG)
  Receive Date: 20251010
  Receipt Date: 20251010
  Transmission Date: 20260117
  Serious: Yes (Life-Threatening, Hospitalization, Other)
  Sender: NOVO NORDISK
  Company Number: EG-NOVOPROD-1522042

PATIENT
  Age: 146 Month
  Sex: Male
  Weight: 45 kg

DRUGS (4)
  1. LANTUS [Concomitant]
     Active Substance: INSULIN GLARGINE
     Indication: Diabetes mellitus
     Dosage: 21 IU
     Route: 058
  2. LANTUS [Concomitant]
     Active Substance: INSULIN GLARGINE
     Dosage: 15U (CURRENT DOSE)
     Route: 058
  3. NOVORAPID [Suspect]
     Active Substance: INSULIN ASPART
     Indication: Diabetes mellitus
     Dosage: 10 IU, QD (MEAL AROUND 3U ,7 U)
     Route: 058
  4. NOVORAPID [Suspect]
     Active Substance: INSULIN ASPART
     Dosage: 24 IU, QD (5 U AND 7 U AT MORNING AND 12 U AT LUNCH)
     Route: 058

REACTIONS (5)
  - Diabetic ketoacidosis [Not Recovered/Not Resolved]
  - Fall [Not Recovered/Not Resolved]
  - Blood glucose increased [Unknown]
  - Blood glucose increased [Unknown]
  - Drug ineffective [Unknown]
